FAERS Safety Report 13865096 (Version 2)
Quarter: 2018Q2

REPORT INFORMATION
  Report Type: Report from Study
  Country: IT (occurrence: IT)
  Receive Date: 20170814
  Receipt Date: 20180629
  Transmission Date: 20180711
  Serious: Yes (Hospitalization, Other)
  Sender: FDA-Public Use
  Company Number: IT-TEVA-794219ACC

PATIENT
  Age: 61 Year
  Sex: Female

DRUGS (7)
  1. TALOFEN [Interacting]
     Active Substance: PROMAZINE HYDROCHLORIDE
     Indication: PRODUCT USED FOR UNKNOWN INDICATION
     Route: 048
     Dates: start: 20170629, end: 20170629
  2. VENLAFAXINE [Interacting]
     Active Substance: VENLAFAXINE HYDROCHLORIDE
     Indication: PRODUCT USED FOR UNKNOWN INDICATION
     Route: 048
     Dates: start: 20170629, end: 20170629
  3. EUTIROX - MERCK SERONO S.P.A. [Interacting]
     Active Substance: LEVOTHYROXINE SODIUM
     Indication: PRODUCT USED FOR UNKNOWN INDICATION
     Route: 048
     Dates: start: 20170629, end: 20170629
  4. ALCOHOL. [Interacting]
     Active Substance: ALCOHOL
     Indication: PRODUCT USED FOR UNKNOWN INDICATION
     Dosage: WINE
     Route: 065
     Dates: start: 20170629, end: 20170629
  5. TALOFEN [Interacting]
     Active Substance: PROMAZINE HYDROCHLORIDE
     Route: 065
  6. LORAZEPAM. [Interacting]
     Active Substance: LORAZEPAM
     Dosage: 2.5 MILLIGRAM DAILY;
     Route: 065
  7. LORAZEPAM. [Suspect]
     Active Substance: LORAZEPAM
     Indication: PRODUCT USED FOR UNKNOWN INDICATION
     Route: 048
     Dates: start: 20170629, end: 20170629

REACTIONS (5)
  - Alcohol interaction [Recovered/Resolved]
  - Intentional self-injury [Recovered/Resolved]
  - Drug use disorder [Recovered/Resolved]
  - Slow speech [Recovered/Resolved]
  - Drug abuse [Recovered/Resolved]

NARRATIVE: CASE EVENT DATE: 20170630
